FAERS Safety Report 8850448 (Version 3)
Quarter: 2012Q4

REPORT INFORMATION
  Report Type: 
  Country: US (occurrence: US)
  Receive Date: 20121019
  Receipt Date: 20121129
  Transmission Date: 20130627
  Serious: Yes (Other)
  Sender: FDA-Public Use
  Company Number: US-PFIZER INC-2012261121

PATIENT
  Age: 48 Year
  Sex: Female

DRUGS (2)
  1. CHANTIX [Suspect]
     Dosage: 1 mg, 2x/day
  2. RELPAX [Suspect]
     Indication: HEADACHE
     Dosage: 40 mg, 1 at onset of headache

REACTIONS (4)
  - Joint injury [Unknown]
  - Fall [Unknown]
  - Impaired work ability [Unknown]
  - Lower limb fracture [Unknown]
